FAERS Safety Report 24909771 (Version 1)
Quarter: 2025Q1

REPORT INFORMATION
  Report Type: Spontaneous
  Country: US (occurrence: US)
  Receive Date: 20250131
  Receipt Date: 20250131
  Transmission Date: 20250409
  Serious: Yes (Other)
  Sender: BAYER HEALTHCARE LLC
  Company Number: US-BAYER-2025A014395

PATIENT

DRUGS (3)
  1. ALEVE [Suspect]
     Active Substance: NAPROXEN SODIUM
  2. IBUPROFEN [Suspect]
     Active Substance: IBUPROFEN
  3. MELOXICAM [Suspect]
     Active Substance: MELOXICAM

REACTIONS (1)
  - Renal failure [Unknown]
